FAERS Safety Report 7273902-9 (Version None)
Quarter: 2011Q1

REPORT INFORMATION
  Report Type: 
  Country: None (occurrence: None)
  Receive Date: 20110203
  Receipt Date: 20110126
  Transmission Date: 20110831
  Serious: Yes (Hospitalization)
  Sender: FDA-Public Use
  Company Number: US-GILEAD-2010-0034039

PATIENT
  Age: 82 Year
  Sex: Female

DRUGS (1)
  1. LETAIRIS [Suspect]
     Indication: PULMONARY ARTERIAL HYPERTENSION
     Route: 048
     Dates: start: 20101104

REACTIONS (5)
  - CHEST PAIN [None]
  - CHEST DISCOMFORT [None]
  - PNEUMONIA [None]
  - CARDIAC FAILURE CONGESTIVE [None]
  - PLEURAL EFFUSION [None]
